FAERS Safety Report 18218480 (Version 1)
Quarter: 2020Q3

REPORT INFORMATION
  Report Type: Spontaneous
  Country: US (occurrence: US)
  Receive Date: 20200831
  Receipt Date: 20200831
  Transmission Date: 20201103
  Serious: No
  Sender: FDA-Public Use
  Company Number: None

PATIENT
  Age: 60 Year
  Sex: Male
  Weight: 104 kg

DRUGS (1)
  1. DIVALPROEX (DIVALPROEX NA 500MG TAB, EC) [Suspect]
     Active Substance: DIVALPROEX SODIUM
     Route: 048
     Dates: end: 20200406

REACTIONS (1)
  - Thrombocytopenia [None]

NARRATIVE: CASE EVENT DATE: 20200402
